FAERS Safety Report 15608637 (Version 15)
Quarter: 2019Q2

REPORT INFORMATION
  Report Type: Report from Study
  Country: CA (occurrence: CA)
  Receive Date: 20181112
  Receipt Date: 20190621
  Transmission Date: 20190711
  Serious: Yes (Other)
  Sender: FDA-Public Use
  Company Number: CA-SA-2018SA272775

PATIENT
  Age: 26 Year
  Sex: Female

DRUGS (17)
  1. CIMETIDINE [Concomitant]
     Active Substance: CIMETIDINE
     Indication: PREMEDICATION
     Dosage: 200 MG, UNK
     Route: 048
     Dates: start: 20180924, end: 20180928
  2. BENADRYL [Concomitant]
     Active Substance: DIPHENHYDRAMINE HYDROCHLORIDE
     Dosage: 25 MG
     Route: 042
     Dates: start: 20180924, end: 20180928
  3. ALEMTUZUMAB [Suspect]
     Active Substance: ALEMTUZUMAB
     Indication: RELAPSING-REMITTING MULTIPLE SCLEROSIS
     Dosage: 12 MG, QD
     Route: 041
     Dates: start: 20180924, end: 20180928
  4. MVI [VITAMINS NOS] [Concomitant]
     Dosage: UNK UNK, UNK
     Route: 048
  5. VYVANSE [Concomitant]
     Active Substance: LISDEXAMFETAMINE DIMESYLATE
     Dosage: 20 UNK
  6. ACETAMINOPHEN. [Concomitant]
     Active Substance: ACETAMINOPHEN
     Indication: PREMEDICATION
     Dosage: 975 MG, UNK
     Route: 048
     Dates: start: 20180924, end: 20180928
  7. ACYCLOVIR [ACICLOVIR] [Concomitant]
     Active Substance: ACYCLOVIR
     Indication: PREMEDICATION
     Dosage: 200 MG, UNK
     Route: 048
     Dates: start: 20180924, end: 20180928
  8. BENADRYL [Concomitant]
     Active Substance: DIPHENHYDRAMINE HYDROCHLORIDE
     Dosage: 50 MG, UNK
     Route: 048
     Dates: start: 20180924, end: 20180928
  9. VYVANSE [Concomitant]
     Active Substance: LISDEXAMFETAMINE DIMESYLATE
     Dosage: 10 MG, UNK
     Route: 048
     Dates: start: 2019
  10. IMITREX [Concomitant]
     Active Substance: SUMATRIPTAN SUCCINATE
     Dosage: UNK UNK, UNK
     Route: 048
  11. SEPTRA [Concomitant]
     Active Substance: SULFAMETHOXAZOLE\TRIMETHOPRIM
     Indication: PREMEDICATION
     Dosage: UNK, THRICE A WEEK
     Route: 048
     Dates: start: 20180924
  12. BENADRYL [Concomitant]
     Active Substance: DIPHENHYDRAMINE HYDROCHLORIDE
     Dosage: 25 MG, UNK
     Route: 048
     Dates: start: 20180924, end: 20180928
  13. BENADRYL [Concomitant]
     Active Substance: DIPHENHYDRAMINE HYDROCHLORIDE
     Indication: PREMEDICATION
     Dosage: 50 MG, UNK
     Route: 042
     Dates: start: 20180924, end: 20180928
  14. TYLENOL [Concomitant]
     Active Substance: ACETAMINOPHEN
     Indication: PREMEDICATION
     Dosage: 975 MG, UNK
     Route: 048
     Dates: start: 20180924, end: 20180928
  15. CONCERTA [Suspect]
     Active Substance: METHYLPHENIDATE HYDROCHLORIDE
     Indication: FATIGUE
     Dosage: UNK UNK, UNK
     Route: 048
     Dates: start: 2019
  16. GRAVOL [Concomitant]
     Active Substance: DIMENHYDRINATE
     Indication: PREMEDICATION
     Dosage: 50 MG, UNK
     Route: 048
     Dates: start: 20180924, end: 20180928
  17. SOLU-MEDROL [Concomitant]
     Active Substance: METHYLPREDNISOLONE SODIUM SUCCINATE
     Indication: PREMEDICATION
     Dosage: 1000 MG, UNK
     Route: 042
     Dates: start: 20180924, end: 20180928

REACTIONS (34)
  - Mean cell haemoglobin decreased [Not Recovered/Not Resolved]
  - Pain [Recovered/Resolved]
  - Pruritus generalised [Recovered/Resolved]
  - Body temperature increased [Recovered/Resolved]
  - Neutropenia [Not Recovered/Not Resolved]
  - Eating disorder [Recovered/Resolved]
  - Urine abnormality [Not Recovered/Not Resolved]
  - Chest discomfort [Recovered/Resolved]
  - Sensation of foreign body [Recovered/Resolved]
  - Illusion [Unknown]
  - Pharyngeal swelling [Unknown]
  - Wheezing [Unknown]
  - Red blood cell elliptocytes present [Not Recovered/Not Resolved]
  - Mean cell volume decreased [Not Recovered/Not Resolved]
  - Irritability [Unknown]
  - Urticaria [Recovered/Resolved]
  - Insomnia [Not Recovered/Not Resolved]
  - Neutrophil count decreased [Not Recovered/Not Resolved]
  - Microcytosis [Not Recovered/Not Resolved]
  - Urine leukocyte esterase positive [Recovered/Resolved]
  - Dyspnoea [Recovered/Resolved]
  - White blood cell count decreased [Not Recovered/Not Resolved]
  - Productive cough [Recovered/Resolved]
  - Haematocrit decreased [Recovered/Resolved]
  - Asthenia [Recovered/Resolved]
  - Hypochromasia [Not Recovered/Not Resolved]
  - Back pain [Not Recovered/Not Resolved]
  - Blood urine present [Recovered/Resolved]
  - Haemoglobin decreased [Not Recovered/Not Resolved]
  - Lymphocyte count decreased [Not Recovered/Not Resolved]
  - Headache [Recovered/Resolved]
  - Nausea [Recovered/Resolved]
  - Fatigue [Recovered/Resolved]
  - Heart rate increased [Recovered/Resolved]

NARRATIVE: CASE EVENT DATE: 20180925
